FAERS Safety Report 8105761-6 (Version None)
Quarter: 2012Q1

REPORT INFORMATION
  Report Type: 
  Country: None (occurrence: None)
  Receive Date: 20120201
  Receipt Date: 20120124
  Transmission Date: 20120608
  Serious: Yes (Other)
  Sender: FDA-Public Use
  Company Number: US-ASTRAZENECA-2012SE05217

PATIENT
  Age: 61 Year
  Sex: Female

DRUGS (2)
  1. NEXIUM [Suspect]
     Route: 048
  2. NEXIUM [Suspect]
     Route: 048

REACTIONS (5)
  - INSOMNIA [None]
  - GASTROOESOPHAGEAL REFLUX DISEASE [None]
  - THYROID CANCER [None]
  - MALAISE [None]
  - SLEEP DISORDER DUE TO A GENERAL MEDICAL CONDITION [None]
